FAERS Safety Report 7596885-0 (Version None)
Quarter: 2011Q3

REPORT INFORMATION
  Report Type: 
  Country: None (occurrence: None)
  Receive Date: 20110708
  Receipt Date: 20110706
  Transmission Date: 20111222
  Serious: Yes (Other)
  Sender: FDA-Public Use
  Company Number: US-PFIZER INC-2011152670

PATIENT
  Sex: Female
  Weight: 67.12 kg

DRUGS (9)
  1. CHANTIX [Suspect]
     Dosage: 1 MG, 2X/DAY
     Route: 048
     Dates: start: 20101001
  2. AMITRIPTYLINE [Concomitant]
     Indication: SLEEP DISORDER
     Dosage: 25 MG, UNK
  3. SYNTHROID [Concomitant]
     Indication: THYROID DISORDER
     Dosage: 0.1 UG, DAILY
  4. EFFEXOR [Concomitant]
     Indication: DEPRESSION
     Dosage: 75 MG, DAILY
  5. XANAX [Concomitant]
     Indication: ANXIETY
     Dosage: 0.5 MG, UNK
  6. CHANTIX [Suspect]
     Dosage: 0.5 MG DAILY
     Route: 048
     Dates: start: 20110701
  7. CHANTIX [Suspect]
     Indication: SMOKING CESSATION THERAPY
     Dosage: 0.5 MG, DAILY
     Route: 048
     Dates: start: 20090822
  8. CHANTIX [Suspect]
     Dosage: 1 MG, 2X/DAY
     Route: 048
     Dates: start: 20090101
  9. CHANTIX [Suspect]
     Dosage: 0.5 MG DAILY
     Route: 048
     Dates: start: 20101001, end: 20101001

REACTIONS (4)
  - CONSTIPATION [None]
  - ABDOMINAL PAIN UPPER [None]
  - DISCOMFORT [None]
  - BILIARY COLIC [None]
